FAERS Safety Report 8926402 (Version 3)
Quarter: 2013Q1

REPORT INFORMATION
  Report Type: Spontaneous
  Country: US (occurrence: US)
  Receive Date: 20121127
  Receipt Date: 20130208
  Transmission Date: 20140127
  Serious: No
  Sender: FDA-Public Use
  Company Number: US-PFIZER INC-2012292781

PATIENT
  Sex: Female

DRUGS (5)
  1. AROMASIN [Suspect]
     Dosage: 25 MG, 1X/DAY
     Route: 048
     Dates: start: 20120206, end: 20121115
  2. DILTIAZEM [Concomitant]
     Dosage: UNK
  3. JANTOVEN [Concomitant]
     Dosage: UNK
  4. LISINOPRIL [Concomitant]
     Dosage: UNK
  5. METHIMAZOLE [Concomitant]
     Dosage: UNK

REACTIONS (19)
  - Fatigue [Unknown]
  - Hot flush [Recovered/Resolved]
  - Arthralgia [Unknown]
  - Headache [Unknown]
  - Visual impairment [Recovered/Resolved]
  - Swelling [Unknown]
  - Pyrexia [Unknown]
  - Chills [Recovered/Resolved]
  - Dizziness [Recovered/Resolved]
  - Abdominal pain upper [Unknown]
  - Pain in extremity [Unknown]
  - Back pain [Unknown]
  - Musculoskeletal pain [Unknown]
  - Dehydration [Unknown]
  - Hyperhidrosis [Recovered/Resolved]
  - Dehydration [Unknown]
  - Local swelling [Unknown]
  - Sensory disturbance [Unknown]
  - Retching [Unknown]
